FAERS Safety Report 8510828-4 (Version None)
Quarter: 2012Q3

REPORT INFORMATION
  Report Type: 
  Country: None (occurrence: None)
  Receive Date: 20120716
  Receipt Date: 20120702
  Transmission Date: 20120928
  Serious: Yes (Disabling)
  Sender: FDA-Public Use
  Company Number: GB-RANBAXY-2012R1-57684

PATIENT
  Age: 30 Year
  Sex: Male
  Weight: 50.8 kg

DRUGS (2)
  1. CLARITHROMYCIN [Suspect]
     Indication: LOWER RESPIRATORY TRACT INFECTION
     Dosage: UNK
     Route: 051
     Dates: start: 20120525, end: 20120602
  2. BACLOFEN [Suspect]
     Indication: PRODUCT USED FOR UNKNOWN INDICATION
     Dosage: 10 MG, TID
     Route: 065

REACTIONS (7)
  - HALLUCINATION [None]
  - VOMITING [None]
  - DIARRHOEA [None]
  - MUSCLE SPASMS [None]
  - WITHDRAWAL SYNDROME [None]
  - DRUG INEFFECTIVE [None]
  - PSYCHOMOTOR HYPERACTIVITY [None]
